FAERS Safety Report 17654280 (Version 5)
Quarter: 2021Q4

REPORT INFORMATION
  Report Type: Other
  Country: JP (occurrence: JP)
  Receive Date: 20200410
  Receipt Date: 20211112
  Transmission Date: 20220303
  Serious: Yes (Other)
  Sender: FDA-Public Use
  Company Number: JP-CHUGAI-A2019016060ROCHE

PATIENT
  Age: 62 Year
  Sex: Male
  Weight: 63 kg

DRUGS (12)
  1. EMICIZUMAB [Suspect]
     Active Substance: EMICIZUMAB
     Indication: Haemophilia A with anti factor VIII
     Route: 058
     Dates: start: 20180614, end: 20180705
  2. EMICIZUMAB [Suspect]
     Active Substance: EMICIZUMAB
     Route: 058
     Dates: start: 20180712, end: 20190516
  3. LYRICA [Suspect]
     Active Substance: PREGABALIN
     Indication: Carpal tunnel syndrome
     Dosage: ORAL DRUG UNSPECIFIED FORM
     Route: 048
     Dates: start: 201811, end: 20190221
  4. LYRICA [Suspect]
     Active Substance: PREGABALIN
     Indication: Haemophilia A with anti factor VIII
  5. NOVOSEVEN [Concomitant]
     Active Substance: COAGULATION FACTOR VIIA RECOMBINANT HUMAN
     Indication: Haemophilia A with anti factor VIII
     Dosage: 5MG,1 TIMES IN
     Route: 065
     Dates: start: 20190322
  6. NOVOSEVEN [Concomitant]
     Active Substance: COAGULATION FACTOR VIIA RECOMBINANT HUMAN
     Route: 065
     Dates: start: 20190411
  7. NOVOSEVEN [Concomitant]
     Active Substance: COAGULATION FACTOR VIIA RECOMBINANT HUMAN
     Route: 065
     Dates: start: 20190430
  8. NOVOSEVEN [Concomitant]
     Active Substance: COAGULATION FACTOR VIIA RECOMBINANT HUMAN
     Route: 065
     Dates: start: 20190430
  9. NOVOSEVEN [Concomitant]
     Active Substance: COAGULATION FACTOR VIIA RECOMBINANT HUMAN
     Route: 065
     Dates: start: 20190515
  10. NOVOSEVEN [Concomitant]
     Active Substance: COAGULATION FACTOR VIIA RECOMBINANT HUMAN
     Route: 065
     Dates: start: 20190518
  11. BYCLOT [Concomitant]
     Active Substance: COAGULATION FACTOR VII HUMAN\COAGULATION FACTOR X HUMAN
     Indication: Haemophilia A with anti factor VIII
     Route: 065
  12. BYCLOT [Concomitant]
     Active Substance: COAGULATION FACTOR VII HUMAN\COAGULATION FACTOR X HUMAN
     Route: 065

REACTIONS (5)
  - Drug specific antibody present [Not Recovered/Not Resolved]
  - Activated partial thromboplastin time prolonged [Not Recovered/Not Resolved]
  - Oedema peripheral [Recovered/Resolved]
  - Therapeutic product effect incomplete [Unknown]
  - Therapeutic response decreased [Unknown]

NARRATIVE: CASE EVENT DATE: 20190110
